FAERS Safety Report 7641435-3 (Version None)
Quarter: 2011Q3

REPORT INFORMATION
  Report Type: 
  Country: None (occurrence: None)
  Receive Date: 20110728
  Receipt Date: 20110725
  Transmission Date: 20111222
  Serious: Yes (Hospitalization)
  Sender: FDA-Public Use
  Company Number: BR-ABBOTT-11P-020-0841515-00

PATIENT
  Sex: Male
  Weight: 60 kg

DRUGS (3)
  1. HUMIRA [Suspect]
     Indication: CROHN'S DISEASE
     Dosage: INDUCTION DOSE
     Route: 058
     Dates: start: 20100925, end: 20100925
  2. MESSALAZINE [Concomitant]
     Indication: COLITIS
     Route: 048
     Dates: start: 20100925
  3. HUMIRA [Suspect]
     Route: 058

REACTIONS (1)
  - LIVER DISORDER [None]
